FAERS Safety Report 7197020-3 (Version None)
Quarter: 2010Q4

REPORT INFORMATION
  Report Type: 
  Country: None (occurrence: None)
  Receive Date: 20101224
  Receipt Date: 20101214
  Transmission Date: 20110411
  Serious: Yes (Hospitalization, Other)
  Sender: FDA-Public Use
  Company Number: PHBS2006BR12084

PATIENT
  Sex: Male
  Weight: 82 kg

DRUGS (23)
  1. FORASEQ [Suspect]
     Indication: ASTHMA
     Dosage: 12/200 MCG, Q12H
     Dates: start: 20040101
  2. FORASEQ [Suspect]
     Dosage: 12/200 MCG, 1/DAY
  3. FORASEQ [Suspect]
     Dosage: 12/400MCG
     Dates: start: 20071231, end: 20080330
  4. FORASEQ [Suspect]
     Dosage: QD
  5. FORASEQ [Suspect]
     Dosage: UNK, BID
  6. FORASEQ [Suspect]
     Dosage: 12/200 MCG, MORE THAN 2 TIMES/DAY
  7. FORASEQ [Suspect]
     Dosage: 12/400 MCG, EVERY 12 HOURS
  8. FORASEQ [Suspect]
     Dosage: 12/400 MCG
     Dates: start: 20090819
  9. FORASEQ [Suspect]
     Dosage: 12/400 MCG EVERY 12 HOURS
  10. FORASEQ [Suspect]
     Dosage: TWICE DAY
  11. PARACETAMOL [Concomitant]
     Indication: TOOTHACHE
     Dosage: 40 DRP, UNK
  12. ALDACTONE [Concomitant]
     Indication: CARDIOMEGALY
     Dosage: 1/2 DF DAILY
     Route: 048
  13. ALDACTONE [Concomitant]
     Indication: CARDIAC FAILURE
     Dosage: 1 TAB/DAY
  14. ALDACTONE [Concomitant]
     Indication: CARDIAC DISORDER
  15. AMIODARONE [Concomitant]
     Indication: ARRHYTHMIA
     Dosage: 200 MG, QD
     Route: 048
     Dates: start: 20060601
  16. ENALAPRIL MALEATE [Concomitant]
     Indication: HYPERTENSION
     Dosage: 12.5 MG/ 20 MG, 2 TABLETS /DAY
     Route: 048
     Dates: start: 20030101
  17. DIAZEPAM [Concomitant]
     Indication: CEREBRAL DISORDER
     Dosage: 10 MG, UNK
     Route: 048
     Dates: start: 19960101
  18. DIAZEPAM [Concomitant]
     Indication: NERVOUS SYSTEM DISORDER
     Dosage: 10 MG, UNK
     Route: 048
  19. DIAZEPAM [Concomitant]
     Indication: NERVOUSNESS
  20. HYDROCHLOROTHIAZIDE [Suspect]
     Indication: HYPERTENSION
     Dosage: 25 MG, 1 TABLET/DAY
     Route: 048
  21. CAPTOPRIL [Concomitant]
     Indication: HYPERTENSION
     Dosage: UNK, UNK
     Route: 048
     Dates: end: 20060601
  22. RANITIDINE [Concomitant]
     Indication: GASTRITIS
  23. RANITIDINE [Concomitant]
     Indication: NERVOUSNESS

REACTIONS (41)
  - ABDOMINAL DISCOMFORT [None]
  - ABDOMINAL PAIN UPPER [None]
  - ARRHYTHMIA [None]
  - ASTHENIA [None]
  - ASTHMA [None]
  - BLOOD PRESSURE FLUCTUATION [None]
  - BLOOD PRESSURE INCREASED [None]
  - CARDIAC DISORDER [None]
  - CARDIOMEGALY [None]
  - CARDIOVASCULAR DISORDER [None]
  - CHEST PAIN [None]
  - CONFUSIONAL STATE [None]
  - COUGH [None]
  - DEVICE MALFUNCTION [None]
  - DIABETES MELLITUS [None]
  - DIZZINESS [None]
  - DRUG INEFFECTIVE [None]
  - DRY MOUTH [None]
  - DYSPHONIA [None]
  - DYSPNOEA [None]
  - ELECTROCARDIOGRAM ABNORMAL [None]
  - FATIGUE [None]
  - FEELING ABNORMAL [None]
  - HAEMOTHORAX [None]
  - HEART RATE INCREASED [None]
  - HYPOAESTHESIA ORAL [None]
  - INCORRECT DOSE ADMINISTERED [None]
  - INFLUENZA [None]
  - LEFT VENTRICULAR DYSFUNCTION [None]
  - NASOPHARYNGITIS [None]
  - OEDEMA PERIPHERAL [None]
  - PALPITATIONS [None]
  - PARAESTHESIA [None]
  - PLEURAL EFFUSION [None]
  - PULMONARY FUNCTION TEST DECREASED [None]
  - SOMNOLENCE [None]
  - TOOTHACHE [None]
  - TREATMENT NONCOMPLIANCE [None]
  - VOMITING [None]
  - WEIGHT DECREASED [None]
  - WEIGHT INCREASED [None]
